FAERS Safety Report 6102554-6 (Version None)
Quarter: 2009Q1

REPORT INFORMATION
  Report Type: 
  Country: None (occurrence: None)
  Receive Date: 20090304
  Receipt Date: 20080819
  Transmission Date: 20090719
  Serious: No
  Sender: FDA-Public Use
  Company Number: A0743316A

PATIENT
  Age: 58 Year
  Sex: Male

DRUGS (3)
  1. REQUIP [Suspect]
     Indication: PARKINSON'S DISEASE
     Dosage: .25MG TWICE PER DAY
     Route: 048
     Dates: start: 20080701, end: 20080804
  2. ROPINIROLE [Suspect]
     Indication: PARKINSON'S DISEASE
     Dosage: .25MG TWICE PER DAY
     Route: 048
     Dates: start: 20080804
  3. AZILECT [Concomitant]

REACTIONS (1)
  - SOMNOLENCE [None]
